FAERS Safety Report 8327786-8 (Version None)
Quarter: 2012Q2

REPORT INFORMATION
  Report Type: 
  Country: None (occurrence: None)
  Receive Date: 20120502
  Receipt Date: 20120424
  Transmission Date: 20120825
  Serious: No
  Sender: FDA-Public Use
  Company Number: US-PFIZER INC-2012101148

PATIENT
  Age: 68 Year
  Sex: Male

DRUGS (4)
  1. LIPITOR [Suspect]
     Indication: BLOOD CHOLESTEROL INCREASED
     Dosage: 20 MG, 1X/DAY, AT 5 P.M.
     Dates: end: 20120401
  2. TIMOLOL [Concomitant]
     Indication: GLAUCOMA
     Dosage: UNK
  3. DORZOLAMIDE [Concomitant]
     Indication: GLAUCOMA
     Dosage: UNK
  4. TRAVATAN [Concomitant]
     Indication: GLAUCOMA
     Dosage: UNK

REACTIONS (3)
  - MUSCULOSKELETAL STIFFNESS [None]
  - MYALGIA [None]
  - MUSCLE SPASMS [None]
